FAERS Safety Report 14303603 (Version 2)
Quarter: 2018Q3

REPORT INFORMATION
  Report Type: Spontaneous
  Country: FR (occurrence: FR)
  Receive Date: 20171219
  Receipt Date: 20180727
  Transmission Date: 20181010
  Serious: Yes (Other)
  Sender: FDA-Public Use
  Company Number: FR-OTSUKA-2016_002872

PATIENT
  Age: 37 Year
  Sex: Male

DRUGS (5)
  1. ABILIFY [Suspect]
     Active Substance: ARIPIPRAZOLE
     Indication: MEDICATION ERROR
     Dosage: 10 MG, TID
     Route: 048
     Dates: start: 20160114
  2. PREDNISOLONE. [Concomitant]
     Active Substance: PREDNISOLONE
     Indication: SINUSITIS
     Dosage: UNK
     Route: 065
  3. AMOXICILLINE [Concomitant]
     Active Substance: AMOXICILLIN
     Indication: SINUSITIS
     Dosage: UNK
     Route: 065
  4. SOLUPRED [Concomitant]
     Indication: PRODUCT USED FOR UNKNOWN INDICATION
     Dosage: UNK
     Route: 065
  5. PANTOPRAZOLE [Concomitant]
     Active Substance: PANTOPRAZOLE
     Indication: PRODUCT USED FOR UNKNOWN INDICATION
     Dosage: UNK
     Route: 065

REACTIONS (5)
  - Asthenia [Recovered/Resolved]
  - Wrong drug administered [Unknown]
  - Feeling abnormal [Recovered/Resolved]
  - Medication error [Unknown]
  - Off label use [Unknown]

NARRATIVE: CASE EVENT DATE: 20160114
